FAERS Safety Report 23298803 (Version 1)
Quarter: 2023Q4

REPORT INFORMATION
  Report Type: Spontaneous
  Country: FR (occurrence: FR)
  Receive Date: 20231215
  Receipt Date: 20231215
  Transmission Date: 20240110
  Serious: Yes (Hospitalization, Other)
  Sender: FDA-Public Use
  Company Number: FR-CELLTRION INC.-2023FR023512

PATIENT

DRUGS (6)
  1. TRASTUZUMAB [Suspect]
     Active Substance: TRASTUZUMAB
     Indication: Product used for unknown indication
     Dosage: 480 MILLIGRAM
  2. TRASTUZUMAB [Suspect]
     Active Substance: TRASTUZUMAB
     Dosage: 360 MILLIGRAM, 21 DAY
  3. TRAZIMERA [Suspect]
     Active Substance: TRASTUZUMAB-QYYP
     Indication: Breast cancer
     Dosage: EVERY 3 WEEKS, MOST RECENT DOSE OF 28/AUG/2023, 480MG D1 THEN 360MG EVERY 21 DAYS
     Route: 065
     Dates: start: 20230510
  4. PERJETA [Suspect]
     Active Substance: PERTUZUMAB
     Indication: Breast cancer
     Dosage: 420 MILLIGRAM, EVERY 21 DAY
     Route: 065
     Dates: start: 20230510
  5. PERJETA [Suspect]
     Active Substance: PERTUZUMAB
     Dosage: LAST DOSE ADMINISTERED ON: 28/AUG/2023 22/AUG/2023
     Route: 065
     Dates: start: 20230510
  6. TAXOL [Concomitant]
     Active Substance: PACLITAXEL
     Dosage: UNK, 1/WEEK

REACTIONS (5)
  - Optic neuropathy [Not Recovered/Not Resolved]
  - Metastases to meninges [Unknown]
  - Migraine [Unknown]
  - Rash pustular [Unknown]
  - Headache [Unknown]

NARRATIVE: CASE EVENT DATE: 20230619
